FAERS Safety Report 6415554-3 (Version None)
Quarter: 2009Q4

REPORT INFORMATION
  Report Type: 
  Country: None (occurrence: None)
  Receive Date: 20091027
  Receipt Date: 20091022
  Transmission Date: 20100525
  Serious: Yes (Hospitalization)
  Sender: FDA-Public Use
  Company Number: US-BRISTOL-MYERS SQUIBB COMPANY-14826838

PATIENT
  Age: 59 Year
  Sex: Female
  Weight: 51 kg

DRUGS (9)
  1. CISPLATIN [Suspect]
     Indication: OESOPHAGEAL SQUAMOUS CELL CARCINOMA
     Dosage: 25MG/M2 DAYS 1,8,15,22,29,36.NUMBER OF COURSE:1
     Dates: start: 20090908, end: 20091013
  2. TAXOL [Suspect]
     Indication: OESOPHAGEAL SQUAMOUS CELL CARCINOMA
     Dosage: 50 MG/M2 DAYS1,8,15,22,29,36  NUMBER OF COURSE:1
     Dates: start: 20090908, end: 20091013
  3. RADIATION THERAPY [Suspect]
     Indication: OESOPHAGEAL SQUAMOUS CELL CARCINOMA
     Dosage: 1DF-50.4 GY.NO OF FRACTION:28 ELAPSED DAYS:28 1.8 GY/FX/DAY NUMBER OF COURSE:1
     Dates: start: 20090908, end: 20091016
  4. DIOVAN [Concomitant]
  5. FENTANYL TRANSDERMAL SYSTEM [Concomitant]
  6. LORAZEPAM [Concomitant]
  7. METOPROLOL [Concomitant]
  8. OMEPRAZOLE [Concomitant]
  9. OXYCODONE [Concomitant]

REACTIONS (16)
  - BLOOD ALBUMIN DECREASED [None]
  - BLOOD CALCIUM DECREASED [None]
  - BLOOD CREATINE PHOSPHOKINASE ABNORMAL [None]
  - BLOOD MAGNESIUM DECREASED [None]
  - BLOOD PHOSPHORUS ABNORMAL [None]
  - BLOOD SODIUM DECREASED [None]
  - DEHYDRATION [None]
  - DIARRHOEA [None]
  - DIZZINESS [None]
  - DYSPHAGIA [None]
  - HAEMOGLOBIN DECREASED [None]
  - LYMPHOPENIA [None]
  - MUCOSAL INFLAMMATION [None]
  - OESOPHAGITIS [None]
  - PLATELET COUNT DECREASED [None]
  - WHITE BLOOD CELL COUNT DECREASED [None]
